FAERS Safety Report 7624557 (Version 3)
Quarter: 2012Q4

REPORT INFORMATION
  Report Type: 
  Country: US (occurrence: US)
  Receive Date: 20101011
  Receipt Date: 20120912
  Transmission Date: 20130627
  Serious: Yes (Hospitalization, Disabling, Other)
  Sender: FDA-Public Use
  Company Number: US-PFIZER INC-2010126742

PATIENT
  Age: 23 Year
  Sex: Male

DRUGS (9)
  1. CHANTIX [Suspect]
     Indication: SMOKING CESSATION THERAPY
     Dosage: starter pack, continuing month packs
     Route: 048
     Dates: start: 200706, end: 200803
  2. CHANTIX [Suspect]
     Dosage: starter pack continuing month packs
     Dates: start: 200812, end: 200903
  3. CHANTIX [Suspect]
     Dosage: starter pack continuing month packs
     Dates: start: 201002, end: 201002
  4. WELLBUTRIN [Concomitant]
     Indication: DEPRESSION
     Dosage: UNK
     Dates: start: 2006
  5. ATIVAN [Concomitant]
     Indication: ANXIETY
     Dosage: UNK
     Dates: start: 2006, end: 2012
  6. ATIVAN [Concomitant]
     Indication: SLEEP DISORDER
  7. CIPROFLOXACIN [Concomitant]
     Indication: INFECTION
     Dosage: UNK
     Dates: start: 2006, end: 2008
  8. ZOLOFT [Concomitant]
     Indication: ANXIETY
     Dosage: UNK
     Dates: start: 2006, end: 2008
  9. ZOLOFT [Concomitant]
     Indication: DEPRESSION

REACTIONS (9)
  - Intentional overdose [Recovered/Resolved]
  - Suicide attempt [Recovered/Resolved]
  - Suicidal ideation [Recovered/Resolved]
  - Depression [Not Recovered/Not Resolved]
  - Bipolar disorder [Not Recovered/Not Resolved]
  - Aggression [Not Recovered/Not Resolved]
  - Anxiety [Not Recovered/Not Resolved]
  - Attention deficit/hyperactivity disorder [Not Recovered/Not Resolved]
  - Mental disorder [Unknown]
